FAERS Safety Report 7365897-4 (Version None)
Quarter: 2011Q1

REPORT INFORMATION
  Report Type: 
  Country: None (occurrence: None)
  Receive Date: 20110316
  Receipt Date: 20110316
  Transmission Date: 20110831
  Serious: Yes (Death)
  Sender: FDA-Public Use
  Company Number: None

PATIENT
  Age: 48 Year
  Sex: Male
  Weight: 172.3669 kg

DRUGS (1)
  1. ANDROGEL [Suspect]
     Indication: BLOOD TESTOSTERONE DECREASED
     Dosage: 4 SQUIRTS A DAY DAILY TOP
     Route: 061
     Dates: start: 20100716, end: 20100911

REACTIONS (9)
  - ATRIAL FIBRILLATION [None]
  - OEDEMA PERIPHERAL [None]
  - LOCAL SWELLING [None]
  - TOXICITY TO VARIOUS AGENTS [None]
  - ABDOMINAL DISTENSION [None]
  - BLOOD POTASSIUM DECREASED [None]
  - FATIGUE [None]
  - TESTICULAR SWELLING [None]
  - DYSURIA [None]
